FAERS Safety Report 9485651 (Version 1)
Quarter: 2013Q3

REPORT INFORMATION
  Report Type: Spontaneous
  Country: GB (occurrence: GB)
  Receive Date: 20130829
  Receipt Date: 20130829
  Transmission Date: 20140515
  Serious: Yes (Hospitalization)
  Sender: FDA-Public Use
  Company Number: GB-BRISTOL-MYERS SQUIBB COMPANY-19218403

PATIENT
  Age: 48 Year
  Sex: Female

DRUGS (7)
  1. EXENATIDE [Suspect]
     Dosage: 1DF:10 MCG/0.04ML SOLN FOR INJ 2.4ML PRE-FILLED
     Route: 058
  2. METFORMIN [Concomitant]
     Route: 048
  3. CERAZETTE [Concomitant]
     Dosage: IN MORNING
  4. SIMVASTATIN [Concomitant]
     Dosage: AT NIGHT
     Route: 048
  5. NAPROXEN [Concomitant]
     Route: 048
  6. DOMPERIDONE [Concomitant]
     Dosage: WHEN NECESSARY (PRN)
     Route: 048
  7. MEFENAMIC ACID [Concomitant]
     Dosage: AS NECESSARY (PRN)
     Route: 048

REACTIONS (1)
  - Pancreatic cyst [Unknown]
